FAERS Safety Report 20956543 (Version 1)
Quarter: 2022Q2

REPORT INFORMATION
  Report Type: Spontaneous
  Country: US (occurrence: None)
  Receive Date: 20220613
  Receipt Date: 20220613
  Transmission Date: 20220720
  Serious: Yes (Other)
  Sender: FDA-Public Use
  Company Number: None

PATIENT
  Age: 77 Year
  Sex: Female
  Weight: 58.05 kg

DRUGS (8)
  1. DOXYCYCLINE HYCLATE [Suspect]
     Active Substance: DOXYCYCLINE HYCLATE
     Indication: Lyme disease
     Dosage: OTHER QUANTITY : 1 CAPSULE(S);?FREQUENCY : TWICE A DAY;?
     Route: 048
  2. DOXYCYCLINE HYCLATE [Suspect]
     Active Substance: DOXYCYCLINE HYCLATE
     Indication: Tic
  3. Prevastatin. 40 mg [Concomitant]
  4. amlodipine bensylate 2.5 mg [Concomitant]
  5. trims/hctz 37.5-25 [Concomitant]
  6. Aspirin 81 mg Zinc [Concomitant]
  7. CALCIUM [Concomitant]
  8. magnesium (combination tablets) [Concomitant]

REACTIONS (3)
  - Diplopia [None]
  - Cataract [None]
  - Impaired work ability [None]

NARRATIVE: CASE EVENT DATE: 20220519
